FAERS Safety Report 16124703 (Version 2)
Quarter: 2021Q4

REPORT INFORMATION
  Report Type: Spontaneous
  Country: US (occurrence: US)
  Receive Date: 20190327
  Receipt Date: 20211020
  Transmission Date: 20220303
  Serious: No
  Sender: FDA-Public Use
  Company Number: 2019SE34285

PATIENT
  Sex: Female
  Weight: 65.8 kg

DRUGS (2)
  1. BYDUREON BCISE [Suspect]
     Active Substance: EXENATIDE
     Indication: Diabetes mellitus
     Route: 058
  2. BYDUREON BCISE [Suspect]
     Active Substance: EXENATIDE
     Indication: Glycosylated haemoglobin
     Route: 058

REACTIONS (7)
  - Glycosylated haemoglobin abnormal [Not Recovered/Not Resolved]
  - Visual impairment [Unknown]
  - Weight increased [Not Recovered/Not Resolved]
  - Injection site pain [Recovering/Resolving]
  - Incorrect route of product administration [Not Recovered/Not Resolved]
  - Device malfunction [Unknown]
  - Wrong technique in device usage process [Not Recovered/Not Resolved]
